FAERS Safety Report 10972194 (Version 1)
Quarter: 2015Q1

REPORT INFORMATION
  Report Type: Spontaneous
  Country: US (occurrence: US)
  Receive Date: 20150331
  Receipt Date: 20150331
  Transmission Date: 20150721
  Serious: No
  Sender: FDA-Public Use
  Company Number: US-ELI_LILLY_AND_COMPANY-US201503008974

PATIENT
  Sex: Male

DRUGS (6)
  1. DULERA [Concomitant]
     Active Substance: FORMOTEROL FUMARATE DIHYDRATE\MOMETASONE FUROATE
     Indication: ASTHMA
     Dosage: UNK
     Route: 055
  2. FORTEO [Suspect]
     Active Substance: TERIPARATIDE
     Indication: OSTEOPOROSIS
     Dosage: UNK, QD
     Route: 065
     Dates: start: 2012
  3. FORTEO [Suspect]
     Active Substance: TERIPARATIDE
     Indication: OSTEOPENIA
     Dosage: UNK, QD
     Route: 065
  4. CORTISONE [Concomitant]
     Active Substance: CORTISONE\HYDROCORTISONE
     Indication: ASTHMA
     Dosage: UNK
     Route: 055
  5. PREDNISONE. [Concomitant]
     Active Substance: PREDNISONE
     Dosage: UNK
     Route: 048
  6. QVAR [Concomitant]
     Active Substance: BECLOMETHASONE DIPROPIONATE
     Indication: ASTHMA
     Dosage: UNK
     Route: 055

REACTIONS (2)
  - Incorrect drug administration duration [Not Recovered/Not Resolved]
  - Underdose [Recovered/Resolved]
